FAERS Safety Report 8143611-2 (Version None)
Quarter: 2012Q1

REPORT INFORMATION
  Report Type: 
  Country: None (occurrence: None)
  Receive Date: 20120217
  Receipt Date: 20111228
  Transmission Date: 20120608
  Serious: No
  Sender: FDA-Public Use
  Company Number: US-GLAXOSMITHKLINE-A0959379A

PATIENT
  Age: 64 Year
  Sex: Female

DRUGS (12)
  1. OXYCODONE HCL [Concomitant]
  2. AMLODIPINE [Concomitant]
  3. ATENOLOL [Concomitant]
  4. DEXAMETHASONE [Concomitant]
  5. UNKNOWN [Concomitant]
  6. SODIUM CHLORIDE [Concomitant]
  7. AMBIEN [Concomitant]
  8. CLONIDINE [Concomitant]
  9. KEPPRA [Concomitant]
  10. SYNTHROID [Concomitant]
  11. VOTRIENT [Suspect]
     Indication: RENAL CELL CARCINOMA
     Dosage: 800U UNKNOWN
     Route: 048
     Dates: start: 20111115
  12. WELLBUTRIN [Concomitant]

REACTIONS (1)
  - ELECTROCARDIOGRAM ABNORMAL [None]
